FAERS Safety Report 5005308-7 (Version None)
Quarter: 2006Q2

REPORT INFORMATION
  Report Type: 
  Country: None (occurrence: None)
  Receive Date: 20060518
  Receipt Date: 20060511
  Transmission Date: 20061013
  Serious: Yes (Other)
  Sender: FDA-Public Use
  Company Number: RU-GLAXOSMITHKLINE-B0424214A

PATIENT
  Age: 23 Year
  Sex: Female
  Weight: 55 kg

DRUGS (2)
  1. FLIXONASE [Suspect]
     Indication: DRUG USE FOR UNKNOWN INDICATION
     Route: 065
     Dates: start: 20060419, end: 20060422
  2. ETHINYLOESTRADIOL + DIENOGEST [Concomitant]
     Indication: CONTRACEPTION
     Route: 065
     Dates: start: 20060415

REACTIONS (1)
  - DYSMENORRHOEA [None]
